FAERS Safety Report 9467138 (Version 1)
Quarter: 2013Q3

REPORT INFORMATION
  Report Type: Spontaneous
  Country: US (occurrence: US)
  Receive Date: 20130820
  Receipt Date: 20130820
  Transmission Date: 20140515
  Serious: Yes (Hospitalization, Other)
  Sender: FDA-Public Use
  Company Number: US-ROCHE-1263523

PATIENT
  Sex: Female

DRUGS (6)
  1. ACTEMRA [Suspect]
     Indication: RHEUMATOID ARTHRITIS
     Route: 042
     Dates: start: 20110829
  2. ACTEMRA [Suspect]
     Route: 042
  3. ACTEMRA [Suspect]
     Dosage: 800 MG
     Route: 042
     Dates: start: 20130806
  4. ACTEMRA [Suspect]
     Dosage: 800 MG
     Route: 042
     Dates: start: 20130712
  5. ACTEMRA [Suspect]
     Dosage: 800 MG
     Route: 042
     Dates: start: 20130425
  6. ACTEMRA [Suspect]
     Dosage: 800 MG
     Route: 042
     Dates: start: 20130328

REACTIONS (4)
  - Squamous cell carcinoma [Not Recovered/Not Resolved]
  - Cholecystitis [Unknown]
  - Tendon rupture [Unknown]
  - Pancreatitis [Unknown]
